FAERS Safety Report 6951279-3 (Version None)
Quarter: 2010Q3

REPORT INFORMATION
  Report Type: 
  Country: None (occurrence: None)
  Receive Date: 20100828
  Receipt Date: 20100414
  Transmission Date: 20110219
  Serious: No
  Sender: FDA-Public Use
  Company Number: US-ABBOTT-10P-163-0633925-00

PATIENT
  Sex: Female
  Weight: 45.854 kg

DRUGS (18)
  1. NIASPAN [Suspect]
     Indication: HIGH DENSITY LIPOPROTEIN DECREASED
     Dates: start: 20080101, end: 20100221
  2. NIASPAN [Suspect]
     Indication: BLOOD TRIGLYCERIDES INCREASED
     Dates: start: 20100225
  3. CRESTOR [Concomitant]
     Indication: BLOOD CHOLESTEROL INCREASED
  4. GLUCATROL XL [Concomitant]
     Indication: DIABETES MELLITUS
  5. JENUVIA [Concomitant]
     Indication: DIABETES MELLITUS
  6. TOPROL-XL [Concomitant]
     Indication: HYPERTENSION
  7. NEXIUM [Concomitant]
     Indication: GASTROOESOPHAGEAL REFLUX DISEASE
  8. SYNTHROID [Concomitant]
     Indication: HYPOTHYROIDISM
  9. ZYRTEC [Concomitant]
     Indication: HYPERSENSITIVITY
  10. XANAX [Concomitant]
     Indication: SLEEP DISORDER
  11. COUMADIN [Concomitant]
     Indication: ATRIAL FIBRILLATION
  12. EVISTA [Concomitant]
     Indication: OSTEOPENIA
  13. IMDUR [Concomitant]
     Indication: ATRIAL FIBRILLATION
  14. MULTIPLE VITAMINS [Concomitant]
     Indication: VITAMIN SUPPLEMENTATION
  15. OSTEO BI-FLEX [Concomitant]
     Indication: VITAMIN SUPPLEMENTATION
  16. CALCIUM [Concomitant]
     Indication: MINERAL SUPPLEMENTATION
  17. FISH OIL [Concomitant]
     Indication: SUPPLEMENTATION THERAPY
  18. VITAMIN D [Concomitant]
     Indication: VITAMIN SUPPLEMENTATION

REACTIONS (2)
  - PRURITUS [None]
  - SKIN BURNING SENSATION [None]
